FAERS Safety Report 4845399-7 (Version None)
Quarter: 2005Q4

REPORT INFORMATION
  Report Type: 
  Country: None (occurrence: None)
  Receive Date: 20051129
  Receipt Date: 20051121
  Transmission Date: 20060501
  Serious: Yes (Hospitalization)
  Sender: FDA-Public Use
  Company Number: 2005-134812-NL

PATIENT
  Age: 40 Year
  Sex: Male

DRUGS (4)
  1. MIRTAZAPINE [Suspect]
     Dosage: 30 MG; ORAL
     Route: 048
  2. VENLAFAXINE HCL [Suspect]
     Dosage: 37.5 MG BID; ORAL
     Route: 048
  3. RISPERIDONE [Concomitant]
  4. CARBAMAZEPINE [Concomitant]

REACTIONS (1)
  - GASTROINTESTINAL HAEMORRHAGE [None]
